FAERS Safety Report 6041755-2 (Version None)
Quarter: 2009Q1

REPORT INFORMATION
  Report Type: 
  Country: None (occurrence: None)
  Receive Date: 20090116
  Receipt Date: 20090107
  Transmission Date: 20090719
  Serious: Yes (Other)
  Sender: FDA-Public Use
  Company Number: US-PFIZER INC-2008100781

PATIENT
  Sex: Female
  Weight: 95.454 kg

DRUGS (3)
  1. CELEBREX [Suspect]
     Indication: ARTHRALGIA
     Dates: start: 20080901, end: 20081124
  2. CELEBREX [Suspect]
     Indication: ARTHRITIS
  3. CHOLESTEROL- AND TRIGLYCERIDE REDUCERS [Concomitant]

REACTIONS (11)
  - ANOREXIA [None]
  - CHILLS [None]
  - DRUG INEFFECTIVE [None]
  - DYSARTHRIA [None]
  - DYSPHEMIA [None]
  - HEADACHE [None]
  - HYPERHIDROSIS [None]
  - PYREXIA [None]
  - SOMNOLENCE [None]
  - THIRST DECREASED [None]
  - TREMOR [None]
